FAERS Safety Report 10207030 (Version 1)
Quarter: 2014Q2

REPORT INFORMATION
  Report Type: Spontaneous
  Country: US (occurrence: US)
  Receive Date: 20140530
  Receipt Date: 20140530
  Transmission Date: 20141212
  Serious: Yes (Death)
  Sender: FDA-Public Use
  Company Number: US-ACTAVIS-2014-11621

PATIENT
  Age: 60 Year
  Sex: Male

DRUGS (6)
  1. SILVER SULFADIAZINE [Suspect]
     Indication: PEMPHIGUS
     Dosage: ON THE AFFECTED AREAS OF THE SKIN TWICE DAILY
     Route: 061
  2. PREDNISONE (WATSON LABORATORIES) [Suspect]
     Indication: PRODUCT USED FOR UNKNOWN INDICATION
     Dosage: UNKNOWN
     Route: 048
  3. FLUTICASONE W/SALMETEROL [Suspect]
     Indication: CHRONIC OBSTRUCTIVE PULMONARY DISEASE
     Dosage: UNKNOWN
     Route: 055
  4. TIOTROPIUM [Concomitant]
     Indication: PRODUCT USED FOR UNKNOWN INDICATION
     Dosage: UNKNOWN
     Route: 065
  5. CLONIDINE [Concomitant]
     Indication: PRODUCT USED FOR UNKNOWN INDICATION
     Dosage: UNKNOWN
     Route: 065
  6. ASPIRIN [Concomitant]
     Indication: PRODUCT USED FOR UNKNOWN INDICATION
     Dosage: UNKNOWN
     Route: 065

REACTIONS (6)
  - Megacolon [Fatal]
  - Clostridium difficile colitis [Fatal]
  - Pseudomembranous colitis [Fatal]
  - Multi-organ failure [Fatal]
  - Acute respiratory distress syndrome [Fatal]
  - Hypotension [Fatal]
